FAERS Safety Report 8848890 (Version 1)
Quarter: 2012Q4

REPORT INFORMATION
  Report Type: Spontaneous
  Country: US (occurrence: None)
  Receive Date: 20121015
  Receipt Date: 20121015
  Transmission Date: 20130627
  Serious: Yes (Other)
  Sender: FDA-Public Use
  Company Number: 2012P1060722

PATIENT

DRUGS (1)
  1. MIDAZOLAM [Suspect]
     Dosage: LOT # 012412
EXP DATE 01/--/2014

REACTIONS (1)
  - Drug ineffective [None]
